FAERS Safety Report 9520794 (Version 1)
Quarter: 2013Q3

REPORT INFORMATION
  Report Type: Spontaneous
  Country: US (occurrence: US)
  Receive Date: 20130913
  Receipt Date: 20130913
  Transmission Date: 20140515
  Serious: No
  Sender: FDA-Public Use
  Company Number: US-009507513-1309USA004243

PATIENT
  Sex: Female

DRUGS (7)
  1. VYTORIN [Suspect]
     Indication: HYPERCHOLESTEROLAEMIA
     Dosage: 10/20MG TAKEN ONCE DAILY
     Route: 048
     Dates: start: 2007, end: 201307
  2. ZOCOR [Suspect]
     Dosage: UNK
     Route: 048
     Dates: start: 2013, end: 2013
  3. TOPROL XL TABLETS [Concomitant]
     Route: 048
  4. LOSARTAN POTASSIUM TABLETS [Concomitant]
  5. AMLODIPINE [Concomitant]
  6. FLUOXETINE [Concomitant]
  7. LEVOTHYROXINE SODIUM [Concomitant]
     Route: 048

REACTIONS (1)
  - High density lipoprotein decreased [Not Recovered/Not Resolved]
